FAERS Safety Report 10050560 (Version 1)
Quarter: 2014Q2

REPORT INFORMATION
  Report Type: Spontaneous
  Country: US (occurrence: US)
  Receive Date: 20140401
  Receipt Date: 20140401
  Transmission Date: 20141212
  Serious: No
  Sender: FDA-Public Use
  Company Number: US-ASTRAZENECA-2013SE82928

PATIENT
  Age: 74 Year
  Sex: Female

DRUGS (4)
  1. NEXIUM [Suspect]
     Route: 048
  2. LYSINE [Concomitant]
  3. ZOCOR [Concomitant]
  4. LIPITOR [Concomitant]

REACTIONS (3)
  - Sinus disorder [Unknown]
  - Drug ineffective [Unknown]
  - Aphthous stomatitis [Unknown]
